FAERS Safety Report 23330769 (Version 1)
Quarter: 2023Q4

REPORT INFORMATION
  Report Type: Spontaneous
  Country: US (occurrence: None)
  Receive Date: 20231221
  Receipt Date: 20231221
  Transmission Date: 20240110
  Serious: Yes (Death)
  Sender: FDA-Public Use
  Company Number: None

PATIENT
  Age: 88 Year
  Sex: Female

DRUGS (1)
  1. AUSTEDO [Suspect]
     Active Substance: DEUTETRABENAZINE
     Indication: Product used for unknown indication
     Dosage: OTHER FREQUENCY : SEE B.6 (PAGE;?
     Route: 048
     Dates: start: 20231003, end: 20231206

REACTIONS (1)
  - Death [None]

NARRATIVE: CASE EVENT DATE: 20231206
